FAERS Safety Report 7635534-X (Version None)
Quarter: 2011Q3

REPORT INFORMATION
  Report Type: 
  Country: None (occurrence: None)
  Receive Date: 20110718
  Receipt Date: 20110711
  Transmission Date: 20111222
  Serious: Yes (Death, Hospitalization)
  Sender: FDA-Public Use
  Company Number: 116326-2

PATIENT
  Age: 46 Year
  Sex: Female

DRUGS (4)
  1. LEUCOVORIN CALCIUM [Suspect]
     Indication: COLON CANCER
     Dosage: 347MG, 352MG, 359MG, 343MG IV INFUSION
     Route: 042
     Dates: start: 20100728
  2. LEUCOVORIN CALCIUM [Suspect]
     Indication: COLON CANCER
     Dosage: 347MG, 352MG, 359MG, 343MG IV INFUSION
     Route: 042
     Dates: start: 20100824
  3. LEUCOVORIN CALCIUM [Suspect]
     Indication: COLON CANCER
     Dosage: 347MG, 352MG, 359MG, 343MG IV INFUSION
     Route: 042
     Dates: start: 20100809
  4. LEUCOVORIN CALCIUM [Suspect]
     Indication: COLON CANCER
     Dosage: 347MG, 352MG, 359MG, 343MG IV INFUSION
     Route: 042
     Dates: start: 20100712

REACTIONS (8)
  - VOMITING [None]
  - MITRAL VALVE INCOMPETENCE [None]
  - SINUS TACHYCARDIA [None]
  - TRICUSPID VALVE INCOMPETENCE [None]
  - DIARRHOEA [None]
  - ELECTROCARDIOGRAM QT PROLONGED [None]
  - CARDIOMYOPATHY [None]
  - HYPOKALAEMIA [None]
